FAERS Safety Report 4577162-9 (Version None)
Quarter: 2005Q1

REPORT INFORMATION
  Report Type: 
  Country: None (occurrence: None)
  Receive Date: 20050210
  Receipt Date: 20050201
  Transmission Date: 20050727
  Serious: Yes (Hospitalization)
  Sender: FDA-Public Use
  Company Number: PHEH2005US01532

PATIENT
  Age: 75 Year
  Sex: Male

DRUGS (6)
  1. ZELNORM [Suspect]
     Indication: CONSTIPATION
     Dosage: 6 MG, BID
     Route: 048
  2. PANTOPRAZOLE [Concomitant]
  3. CAPTOPRIL [Concomitant]
  4. UNASYN [Concomitant]
  5. VICODIN [Concomitant]
  6. LASIX [Concomitant]

REACTIONS (7)
  - ABDOMINAL DISTENSION [None]
  - ABDOMINAL PAIN [None]
  - COLONIC OBSTRUCTION [None]
  - INTUBATION [None]
  - LARGE INTESTINE PERFORATION [None]
  - PYREXIA [None]
  - RESPIRATORY FAILURE [None]
